FAERS Safety Report 6595520-8 (Version None)
Quarter: 2010Q1

REPORT INFORMATION
  Report Type: 
  Country: None (occurrence: None)
  Receive Date: 20100223
  Receipt Date: 20100215
  Transmission Date: 20100710
  Serious: Yes (Other)
  Sender: FDA-Public Use
  Company Number: US-ASTRAZENECA-2009UW04218

PATIENT
  Age: 403 Month
  Sex: Female
  Weight: 52.2 kg

DRUGS (14)
  1. SEROQUEL [Suspect]
     Indication: SLEEP DISORDER
     Dosage: 100 MG TO 200 MG
     Route: 048
     Dates: start: 20060101, end: 20070101
  2. CYMBALTA [Concomitant]
     Dates: start: 20080601
  3. DILANTIN [Concomitant]
     Dates: start: 20000901
  4. WELLBUTRIN [Concomitant]
     Dosage: 50-75 MG
     Dates: start: 20020101, end: 20040101
  5. TRAZODONE HCL [Concomitant]
     Dosage: 100-200 MG
     Dates: start: 19910201, end: 20040101
  6. ADDERALL 30 [Concomitant]
     Dates: start: 19980101
  7. TRILEPTAL [Concomitant]
     Dates: start: 20030101, end: 20040101
  8. EFFEXOR [Concomitant]
     Dates: start: 20040101
  9. REMERON [Concomitant]
     Dates: start: 20040101
  10. ELAVIL [Concomitant]
     Dates: start: 20040101
  11. COZAAR [Concomitant]
     Dates: start: 20040101
  12. SERZONE [Concomitant]
     Route: 048
     Dates: start: 19980519
  13. BUSPAR [Concomitant]
     Route: 048
     Dates: start: 19980519
  14. DEPAKOTE [Concomitant]
     Dosage: THREE TABLETS DAILY
     Route: 048
     Dates: start: 19980519

REACTIONS (7)
  - BLOOD GLUCOSE INCREASED [None]
  - DIABETES MELLITUS INADEQUATE CONTROL [None]
  - DIABETIC NEUROPATHY [None]
  - DIABETIC RETINOPATHY [None]
  - PROTEINURIA [None]
  - RENAL DISORDER [None]
  - WEIGHT INCREASED [None]
